FAERS Safety Report 5248688-X (Version None)
Quarter: 2007Q1

REPORT INFORMATION
  Report Type: 
  Country: None (occurrence: None)
  Receive Date: 20070228
  Receipt Date: 20070219
  Transmission Date: 20070707
  Serious: Yes (Other)
  Sender: FDA-Public Use
  Company Number: FR-JNJFOC-20070106976

PATIENT
  Age: 48 Year
  Sex: Male
  Weight: 63 kg

DRUGS (6)
  1. REMICADE [Suspect]
     Indication: ANKYLOSING SPONDYLITIS
     Route: 042
  2. DIALGIREX [Concomitant]
     Route: 048
  3. BUTAZOLIDINE [Concomitant]
     Route: 048
  4. LEVOTHYROX 25 [Concomitant]
     Route: 065
  5. SENAP [Concomitant]
     Route: 065
  6. TANIK [Concomitant]
     Route: 065

REACTIONS (1)
  - LARYNGEAL CANCER [None]
